FAERS Safety Report 6162501-8 (Version None)
Quarter: 2009Q2

REPORT INFORMATION
  Report Type: 
  Country: None (occurrence: None)
  Receive Date: 20090417
  Receipt Date: 20090330
  Transmission Date: 20091009
  Serious: Yes (Hospitalization)
  Sender: FDA-Public Use
  Company Number: 8044788

PATIENT
  Age: 46 Year
  Sex: Female

DRUGS (2)
  1. PREDNISOLONE [Suspect]
     Indication: DERMATOMYOSITIS
  2. ETANECEPT [Suspect]
     Indication: DERMATOMYOSITIS
     Dosage: 25 MG 2/W SC
     Route: 058

REACTIONS (1)
  - NECROTISING FASCIITIS [None]
